FAERS Safety Report 9682007 (Version 2)
Quarter: 2013Q4

REPORT INFORMATION
  Report Type: Report from Study
  Country: US (occurrence: US)
  Receive Date: 20131111
  Receipt Date: 20131125
  Transmission Date: 20140711
  Serious: Yes (Death, Hospitalization, Other)
  Sender: FDA-Public Use
  Company Number: US-ACTELION-A-US2013-90733

PATIENT
  Age: 4 Year
  Sex: Female

DRUGS (4)
  1. TRACLEER [Suspect]
     Indication: PULMONARY ARTERIAL HYPERTENSION
     Dosage: 31.25 MG, BID
     Route: 048
     Dates: start: 20120312, end: 20131021
  2. TRACLEER [Suspect]
     Dosage: 12.5 MG, BID
     Route: 048
     Dates: start: 20100425, end: 20100812
  3. TRACLEER [Suspect]
     Dosage: 15.625 MG, BID
     Route: 048
     Dates: start: 20100813, end: 20120311
  4. SILDENAFIL [Concomitant]

REACTIONS (3)
  - Death [Fatal]
  - Viral infection [Unknown]
  - Cardio-respiratory arrest [Not Recovered/Not Resolved]
